FAERS Safety Report 11723456 (Version 1)
Quarter: 2015Q4

REPORT INFORMATION
  Report Type: Spontaneous
  Country: US (occurrence: US)
  Receive Date: 20151111
  Receipt Date: 20151111
  Transmission Date: 20160304
  Serious: No
  Sender: FDA-Public Use
  Company Number: US-ACTELION PHARMACEUTICALS US, INC.-A-US2015-111585

PATIENT
  Age: 58 Year
  Sex: Female

DRUGS (2)
  1. TYVASO [Concomitant]
     Active Substance: TREPROSTINIL
     Dosage: 12 PUFF, QID
  2. OPSUMIT [Suspect]
     Active Substance: MACITENTAN
     Indication: PULMONARY HYPERTENSION
     Dosage: 10 MG, QD
     Route: 048
     Dates: start: 20140717

REACTIONS (7)
  - Rhinorrhoea [Recovered/Resolved]
  - Productive cough [Unknown]
  - Depressed mood [Unknown]
  - Palpitations [Recovered/Resolved]
  - Respiratory tract congestion [Unknown]
  - Dyspnoea [Recovered/Resolved]
  - Chest pain [Unknown]
